FAERS Safety Report 8932380 (Version 1)
Quarter: 2012Q4

REPORT INFORMATION
  Report Type: 
  Country: US (occurrence: US)
  Receive Date: 20121128
  Receipt Date: 20121128
  Transmission Date: 20130627
  Serious: No
  Sender: FDA-Public Use
  Company Number: US-B.I. PHARMACEUTICALS,INC./RIDGEFIELD-2012-BI-01242BP

PATIENT
  Sex: Female
  Weight: 59 kg

DRUGS (5)
  1. PRADAXA [Suspect]
     Indication: CARDIAC FLUTTER
     Dosage: 150 mg
     Route: 048
     Dates: start: 2012
  2. LISNOPRIL [Concomitant]
     Indication: HYPERTENSION
     Dosage: 40 mg
     Route: 048
  3. ATENOLOL [Concomitant]
     Dosage: 25 mg
     Route: 048
  4. FUROSIMIDE [Concomitant]
     Dosage: 10 mg
     Route: 048
  5. CITALOPRAM [Concomitant]
     Dosage: 10 mg
     Route: 048

REACTIONS (1)
  - Macular degeneration [Not Recovered/Not Resolved]
